FAERS Safety Report 4935228-5 (Version None)
Quarter: 2006Q1

REPORT INFORMATION
  Report Type: 
  Country: None (occurrence: None)
  Receive Date: 20060302
  Receipt Date: 20060210
  Transmission Date: 20060701
  Serious: Yes (Other)
  Sender: FDA-Public Use
  Company Number: US200602002156

PATIENT
  Age: 55 Year
  Sex: Female

DRUGS (6)
  1. HUMULIN R [Suspect]
     Indication: DIABETES MELLITUS
     Dosage: 1.6 U, AS NEEDED, SUB. PUMP
     Route: 057
  2. HUMALOG [Suspect]
     Indication: DIABETES MELLITUS
     Dosage: SUB. PUMP
     Route: 058
  3. HUMULIN N [Suspect]
     Indication: DIABETES MELLITUS
  4. ASPIRIN [Concomitant]
  5. ZOCOR [Concomitant]
  6. NOVOLOG [Concomitant]

REACTIONS (4)
  - BREAST CANCER FEMALE [None]
  - DIABETES MELLITUS INADEQUATE CONTROL [None]
  - HYPERTENSION [None]
  - PHARMACEUTICAL PRODUCT COMPLAINT [None]
